FAERS Safety Report 24366454 (Version 2)
Quarter: 2024Q4

REPORT INFORMATION
  Report Type: Spontaneous
  Country: CA (occurrence: CA)
  Receive Date: 20240926
  Receipt Date: 20241025
  Transmission Date: 20250115
  Serious: Yes (Death, Life-Threatening, Hospitalization, Disabling, Congenital Anomaly, Other)
  Sender: Haleon PLC
  Company Number: CA-002147023-NVSC2024CA182401

PATIENT
  Age: 40 Year
  Sex: Female
  Weight: 96 kg

DRUGS (162)
  1. DICLOFENAC SODIUM [Suspect]
     Active Substance: DICLOFENAC SODIUM
     Indication: Product used for unknown indication
     Route: 065
  2. PANADOL [Suspect]
     Active Substance: ACETAMINOPHEN
     Indication: Rheumatoid arthritis
     Route: 065
  3. PANADOL [Suspect]
     Active Substance: ACETAMINOPHEN
     Route: 065
  4. AIMOVIG [Suspect]
     Active Substance: ERENUMAB-AOOE
     Indication: Migraine
     Route: 065
  5. ADALIMUMAB [Suspect]
     Active Substance: ADALIMUMAB
     Indication: Rheumatoid arthritis
     Route: 058
  6. ADALIMUMAB [Suspect]
     Active Substance: ADALIMUMAB
     Route: 058
  7. ALENDRONATE SODIUM [Suspect]
     Active Substance: ALENDRONATE SODIUM
     Indication: Rheumatoid arthritis
     Route: 065
  8. ALENDRONATE SODIUM\CHOLECALCIFEROL [Suspect]
     Active Substance: ALENDRONATE SODIUM\CHOLECALCIFEROL
     Indication: Product used for unknown indication
     Route: 065
  9. ALENDRONIC ACID [Suspect]
     Active Substance: ALENDRONIC ACID
     Indication: Rheumatoid arthritis
     Route: 065
  10. ALENDRONIC ACID [Suspect]
     Active Substance: ALENDRONIC ACID
     Route: 048
  11. PREDNISONE [Suspect]
     Active Substance: PREDNISONE
     Indication: Rheumatoid arthritis
     Route: 065
  12. PREDNISONE [Suspect]
     Active Substance: PREDNISONE
     Dosage: UNK MG
     Route: 048
  13. PREDNISONE [Suspect]
     Active Substance: PREDNISONE
     Route: 048
  14. PREDNISONE [Suspect]
     Active Substance: PREDNISONE
     Route: 048
  15. PREDNISONE [Suspect]
     Active Substance: PREDNISONE
     Route: 065
  16. PREDNISONE [Suspect]
     Active Substance: PREDNISONE
     Route: 048
  17. LEFLUNOMIDE [Suspect]
     Active Substance: LEFLUNOMIDE
     Indication: Rheumatoid arthritis
     Route: 048
  18. ARAVA [Suspect]
     Active Substance: LEFLUNOMIDE
     Indication: Rheumatoid arthritis
     Route: 048
  19. ASCORBIC ACID [Suspect]
     Active Substance: ASCORBIC ACID
     Indication: Product used for unknown indication
     Route: 065
  20. BERINERT [Suspect]
     Active Substance: HUMAN C1-ESTERASE INHIBITOR
     Indication: Product used for unknown indication
     Route: 065
  21. BOTULINUM TOXIN TYPE A [Suspect]
     Active Substance: BOTULINUM TOXIN TYPE A
     Indication: Product used for unknown indication
     Dosage: POWDER FOR SOLUTION
     Route: 065
  22. BUTRANS [Suspect]
     Active Substance: BUPRENORPHINE
     Indication: Product used for unknown indication
     Route: 065
  23. CANDESARTAN [Suspect]
     Active Substance: CANDESARTAN
     Indication: Migraine
     Route: 065
  24. CELEBREX [Suspect]
     Active Substance: CELECOXIB
     Indication: Product used for unknown indication
     Dosage: 1 EVERY 5 DAYS
     Route: 065
  25. CELEBREX [Suspect]
     Active Substance: CELECOXIB
     Dosage: 1 EVERY 5 DAYS
     Route: 048
  26. CELEBREX [Suspect]
     Active Substance: CELECOXIB
     Dosage: 1 EVERY 1 DAYS
     Route: 065
  27. CELEBREX [Suspect]
     Active Substance: CELECOXIB
     Dosage: 1 EVERY 1 DAYS
     Route: 065
  28. CHLORHEXIDINE GLUCONATE [Suspect]
     Active Substance: CHLORHEXIDINE GLUCONATE
     Indication: Product used for unknown indication
     Route: 061
  29. CHOLOGRAFIN MEGLUMINE [Suspect]
     Active Substance: IODIPAMIDE MEGLUMINE
     Indication: Product used for unknown indication
     Route: 042
  30. CHOLOGRAFIN MEGLUMINE [Suspect]
     Active Substance: IODIPAMIDE MEGLUMINE
     Dosage: LIQUID INTRAVENOUS
     Route: 042
  31. CHOLOGRAFIN MEGLUMINE [Suspect]
     Active Substance: IODIPAMIDE MEGLUMINE
     Route: 042
  32. CIMZIA [Suspect]
     Active Substance: CERTOLIZUMAB PEGOL
     Indication: Rheumatoid arthritis
     Route: 058
  33. CIMZIA [Suspect]
     Active Substance: CERTOLIZUMAB PEGOL
     Route: 058
  34. CIMZIA [Suspect]
     Active Substance: CERTOLIZUMAB PEGOL
     Route: 058
  35. CIMZIA [Suspect]
     Active Substance: CERTOLIZUMAB PEGOL
     Route: 058
  36. CIMZIA [Suspect]
     Active Substance: CERTOLIZUMAB PEGOL
     Route: 058
  37. DESOXIMETASONE [Suspect]
     Active Substance: DESOXIMETASONE
     Indication: Rheumatoid arthritis
     Route: 058
  38. DESOXIMETASONE [Suspect]
     Active Substance: DESOXIMETASONE
     Route: 058
  39. DESOXIMETASONE [Suspect]
     Active Substance: DESOXIMETASONE
     Route: 048
  40. DESOXIMETASONE [Suspect]
     Active Substance: DESOXIMETASONE
     Route: 048
  41. VOLTAREN [Suspect]
     Active Substance: DICLOFENAC SODIUM
     Indication: Product used for unknown indication
     Route: 058
  42. VOLTAREN [Suspect]
     Active Substance: DICLOFENAC SODIUM
     Route: 065
  43. DOMPERIDONE MALEATE [Suspect]
     Active Substance: DOMPERIDONE MALEATE
     Indication: Product used for unknown indication
     Route: 065
  44. ENBREL [Suspect]
     Active Substance: ETANERCEPT
     Indication: Rheumatoid arthritis
     Route: 058
  45. ENBREL [Suspect]
     Active Substance: ETANERCEPT
     Route: 058
  46. ENBREL [Suspect]
     Active Substance: ETANERCEPT
     Route: 065
  47. ENBREL [Suspect]
     Active Substance: ETANERCEPT
     Route: 058
  48. ENBREL [Suspect]
     Active Substance: ETANERCEPT
     Route: 065
  49. ENBREL [Suspect]
     Active Substance: ETANERCEPT
     Route: 058
  50. ENBREL [Suspect]
     Active Substance: ETANERCEPT
     Route: 058
  51. ENBREL [Suspect]
     Active Substance: ETANERCEPT
     Route: 065
  52. METHYLPREDNISOLONE ACETATE [Suspect]
     Active Substance: METHYLPREDNISOLONE ACETATE
     Indication: Product used for unknown indication
     Route: 065
  53. METHYLPREDNISOLONE SODIUM SUCCINATE [Suspect]
     Active Substance: METHYLPREDNISOLONE SODIUM SUCCINATE
     Indication: Product used for unknown indication
     Route: 065
  54. MINOCYCLINE HYDROCHLORIDE [Suspect]
     Active Substance: MINOCYCLINE HYDROCHLORIDE
     Indication: Rheumatoid arthritis
     Route: 065
  55. MINOCYCLINE HYDROCHLORIDE [Suspect]
     Active Substance: MINOCYCLINE HYDROCHLORIDE
     Route: 065
  56. MYOCHRYSINE [Suspect]
     Active Substance: GOLD SODIUM THIOMALATE
     Indication: Rheumatoid arthritis
     Route: 030
  57. NAPROSYN [Suspect]
     Active Substance: NAPROXEN
     Indication: Product used for unknown indication
     Route: 065
  58. NAPROXEN SODIUM [Suspect]
     Active Substance: NAPROXEN SODIUM
     Indication: Rheumatoid arthritis
     Route: 065
  59. NICOTINAMIDE [Suspect]
     Active Substance: NIACINAMIDE
     Indication: Product used for unknown indication
     Route: 065
  60. NUCALA [Suspect]
     Active Substance: MEPOLIZUMAB
     Indication: Product used for unknown indication
     Route: 065
  61. ORENCIA [Suspect]
     Active Substance: ABATACEPT
     Indication: Rheumatoid arthritis
     Route: 065
  62. OXYCODONE HYDROCHLORIDE [Suspect]
     Active Substance: OXYCODONE HYDROCHLORIDE
     Indication: Product used for unknown indication
     Route: 065
  63. PERIOGARD [Suspect]
     Active Substance: CHLORHEXIDINE GLUCONATE
     Indication: Product used for unknown indication
     Route: 002
  64. PREDNISONE [Suspect]
     Active Substance: PREDNISONE
     Indication: Rheumatoid arthritis
     Route: 048
  65. TOPIRAMATE [Suspect]
     Active Substance: TOPIRAMATE
     Indication: Product used for unknown indication
     Route: 065
  66. TOPIRAMATE [Suspect]
     Active Substance: TOPIRAMATE
     Route: 065
  67. TOPIRAMATE [Suspect]
     Active Substance: TOPIRAMATE
     Route: 065
  68. ASCORBIC ACID [Suspect]
     Active Substance: ASCORBIC ACID
     Indication: Product used for unknown indication
     Route: 065
  69. XELJANZ [Suspect]
     Active Substance: TOFACITINIB CITRATE
     Indication: Rheumatoid arthritis
     Route: 048
  70. XELJANZ [Suspect]
     Active Substance: TOFACITINIB CITRATE
     Route: 048
  71. ACETAMINOPHEN\TRAMADOL HYDROCHLORIDE [Suspect]
     Active Substance: ACETAMINOPHEN\TRAMADOL HYDROCHLORIDE
     Indication: Product used for unknown indication
     Route: 065
  72. ACTEMRA [Suspect]
     Active Substance: TOCILIZUMAB
     Indication: Rheumatoid arthritis
     Route: 058
  73. ACTEMRA [Suspect]
     Active Substance: TOCILIZUMAB
     Route: 042
  74. ACTEMRA [Suspect]
     Active Substance: TOCILIZUMAB
     Route: 042
  75. ACTEMRA [Suspect]
     Active Substance: TOCILIZUMAB
     Route: 042
  76. ACTEMRA [Suspect]
     Active Substance: TOCILIZUMAB
     Route: 042
  77. ACTEMRA [Suspect]
     Active Substance: TOCILIZUMAB
     Route: 042
  78. ACTEMRA [Suspect]
     Active Substance: TOCILIZUMAB
     Route: 042
  79. ACTEMRA [Suspect]
     Active Substance: TOCILIZUMAB
     Route: 061
  80. ACTEMRA [Suspect]
     Active Substance: TOCILIZUMAB
     Route: 065
  81. ACTEMRA [Suspect]
     Active Substance: TOCILIZUMAB
     Route: 042
  82. AZATHIOPRINE SODIUM [Suspect]
     Active Substance: AZATHIOPRINE SODIUM
     Indication: Rheumatoid arthritis
     Route: 065
  83. ZYRTEC [Suspect]
     Active Substance: CETIRIZINE HYDROCHLORIDE
     Indication: Rheumatoid arthritis
     Route: 048
  84. ZYRTEC [Suspect]
     Active Substance: CETIRIZINE HYDROCHLORIDE
     Route: 048
  85. ZYRTEC [Suspect]
     Active Substance: CETIRIZINE HYDROCHLORIDE
     Route: 065
  86. ZYRTEC [Suspect]
     Active Substance: CETIRIZINE HYDROCHLORIDE
     Route: 048
  87. ZYRTEC [Suspect]
     Active Substance: CETIRIZINE HYDROCHLORIDE
     Route: 065
  88. ZYRTEC [Suspect]
     Active Substance: CETIRIZINE HYDROCHLORIDE
     Route: 065
  89. ZYRTEC [Suspect]
     Active Substance: CETIRIZINE HYDROCHLORIDE
     Route: 065
  90. VITAMIN A [Suspect]
     Active Substance: VITAMIN A
     Indication: Product used for unknown indication
     Route: 065
  91. VITAMIN A [Suspect]
     Active Substance: VITAMIN A
     Route: 065
  92. FLUMETHASONE PIVALATE [Suspect]
     Active Substance: FLUMETHASONE PIVALATE
     Indication: Product used for unknown indication
     Route: 065
  93. FLUMETHASONE PIVALATE [Suspect]
     Active Substance: FLUMETHASONE PIVALATE
     Route: 065
  94. FLUMETHASONE\SALICYLIC ACID [Suspect]
     Active Substance: FLUMETHASONE\SALICYLIC ACID
     Indication: Product used for unknown indication
     Route: 065
  95. FOLIC ACID [Suspect]
     Active Substance: FOLIC ACID
     Indication: Rheumatoid arthritis
     Route: 048
  96. FOLIC ACID [Suspect]
     Active Substance: FOLIC ACID
     Route: 058
  97. FOLIC ACID [Suspect]
     Active Substance: FOLIC ACID
     Route: 048
  98. FOLIC ACID [Suspect]
     Active Substance: FOLIC ACID
     Route: 065
  99. FOLIC ACID [Suspect]
     Active Substance: FOLIC ACID
     Route: 048
  100. FOLIC ACID [Suspect]
     Active Substance: FOLIC ACID
     Route: 048
  101. FOLIC ACID [Suspect]
     Active Substance: FOLIC ACID
     Route: 065
  102. FOLIC ACID [Suspect]
     Active Substance: FOLIC ACID
     Route: 058
  103. FOLIC ACID [Suspect]
     Active Substance: FOLIC ACID
     Route: 048
  104. FOLIC ACID [Suspect]
     Active Substance: FOLIC ACID
     Route: 065
  105. FOSAMAX [Suspect]
     Active Substance: ALENDRONATE SODIUM
     Indication: Rheumatoid arthritis
     Route: 058
  106. FOSAMAX [Suspect]
     Active Substance: ALENDRONATE SODIUM
     Route: 048
  107. FOSAMAX [Suspect]
     Active Substance: ALENDRONATE SODIUM
     Route: 016
  108. HAIR KERATIN AMINO ACIDS GOLD COMPLEX [Suspect]
     Active Substance: HAIR KERATIN AMINO ACIDS GOLD COMPLEX
     Indication: Product used for unknown indication
     Route: 065
  109. HUMIRA [Suspect]
     Active Substance: ADALIMUMAB
     Indication: Rheumatoid arthritis
     Route: 058
  110. HUMIRA [Suspect]
     Active Substance: ADALIMUMAB
     Route: 065
  111. HUMIRA [Suspect]
     Active Substance: ADALIMUMAB
     Route: 058
  112. HYDROXYCHLOROQUINE [Suspect]
     Active Substance: HYDROXYCHLOROQUINE
     Indication: Rheumatoid arthritis
     Route: 058
  113. HYDROXYCHLOROQUINE [Suspect]
     Active Substance: HYDROXYCHLOROQUINE
     Route: 048
  114. HYDROXYCHLOROQUINE [Suspect]
     Active Substance: HYDROXYCHLOROQUINE
     Route: 048
  115. INFLIXIMAB [Suspect]
     Active Substance: INFLIXIMAB
     Indication: Rheumatoid arthritis
     Route: 042
  116. INFLIXIMAB [Suspect]
     Active Substance: INFLIXIMAB
     Route: 042
  117. INFLIXIMAB [Suspect]
     Active Substance: INFLIXIMAB
     Dosage: UNK MG
     Route: 058
  118. INFLIXIMAB [Suspect]
     Active Substance: INFLIXIMAB
     Route: 042
  119. INFLIXIMAB [Suspect]
     Active Substance: INFLIXIMAB
     Route: 042
  120. ISOPROPYL ALCOHOL [Suspect]
     Active Substance: ISOPROPYL ALCOHOL
     Indication: Product used for unknown indication
     Dosage: LIQUID TOPICAL
     Route: 048
  121. ISOPROPYL ALCOHOL [Suspect]
     Active Substance: ISOPROPYL ALCOHOL
     Route: 048
  122. ISOPROPYL ALCOHOL [Suspect]
     Active Substance: ISOPROPYL ALCOHOL
     Route: 048
  123. LEFLUNOMIDE [Suspect]
     Active Substance: LEFLUNOMIDE
     Indication: Rheumatoid arthritis
     Route: 048
  124. LEFLUNOMIDE [Suspect]
     Active Substance: LEFLUNOMIDE
     Route: 065
  125. LEFLUNOMIDE [Suspect]
     Active Substance: LEFLUNOMIDE
     Route: 065
  126. METHOTREXATE [Suspect]
     Active Substance: METHOTREXATE
     Indication: Rheumatoid arthritis
     Route: 048
  127. METHOTREXATE [Suspect]
     Active Substance: METHOTREXATE
     Route: 058
  128. METHOTREXATE [Suspect]
     Active Substance: METHOTREXATE
     Route: 048
  129. METHOTREXATE [Suspect]
     Active Substance: METHOTREXATE
     Route: 065
  130. PSEUDOEPHEDRINE HYDROCHLORIDE [Suspect]
     Active Substance: PSEUDOEPHEDRINE HYDROCHLORIDE
     Indication: Rheumatoid arthritis
     Route: 065
  131. RAMIPRIL [Suspect]
     Active Substance: RAMIPRIL
     Indication: Rheumatoid arthritis
     Route: 042
  132. CETIRIZINE HYDROCHLORIDE\PSEUDOEPHEDRINE HYDROCHLORIDE [Suspect]
     Active Substance: CETIRIZINE HYDROCHLORIDE\PSEUDOEPHEDRINE HYDROCHLORIDE
     Indication: Rheumatoid arthritis
     Dosage: EXTENDED RELEASE
     Route: 042
  133. CETIRIZINE HYDROCHLORIDE\PSEUDOEPHEDRINE HYDROCHLORIDE [Suspect]
     Active Substance: CETIRIZINE HYDROCHLORIDE\PSEUDOEPHEDRINE HYDROCHLORIDE
     Route: 065
  134. CETIRIZINE HYDROCHLORIDE\PSEUDOEPHEDRINE HYDROCHLORIDE [Suspect]
     Active Substance: CETIRIZINE HYDROCHLORIDE\PSEUDOEPHEDRINE HYDROCHLORIDE
     Route: 065
  135. RITUXIMAB [Suspect]
     Active Substance: RITUXIMAB
     Indication: Rheumatoid arthritis
     Route: 065
  136. RITUXIMAB [Suspect]
     Active Substance: RITUXIMAB
     Route: 042
  137. RITUXIMAB [Suspect]
     Active Substance: RITUXIMAB
     Route: 042
  138. RITUXIMAB [Suspect]
     Active Substance: RITUXIMAB
     Route: 065
  139. RITUXIMAB [Suspect]
     Active Substance: RITUXIMAB
     Route: 058
  140. RITUXIMAB [Suspect]
     Active Substance: RITUXIMAB
     Dosage: 1 EVERY 5 DAYS
     Route: 065
  141. RITUXIMAB [Suspect]
     Active Substance: RITUXIMAB
     Route: 042
  142. RITUXIMAB [Suspect]
     Active Substance: RITUXIMAB
     Route: 042
  143. RITUXIMAB [Suspect]
     Active Substance: RITUXIMAB
     Route: 042
  144. RITUXIMAB [Suspect]
     Active Substance: RITUXIMAB
     Route: 042
  145. SIMPONI [Suspect]
     Active Substance: GOLIMUMAB
     Indication: Rheumatoid arthritis
     Dosage: SOLUTION SUBCUTANEOUS
     Route: 058
  146. SIMPONI [Suspect]
     Active Substance: GOLIMUMAB
     Route: 058
  147. STELARA [Suspect]
     Active Substance: USTEKINUMAB
     Indication: Product used for unknown indication
     Dosage: SOLUTION SUBCUTANEOUS
  148. STELARA [Suspect]
     Active Substance: USTEKINUMAB
     Route: 065
  149. SULFASALAZINE [Suspect]
     Active Substance: SULFASALAZINE
     Indication: Rheumatoid arthritis
     Route: 048
  150. SULFASALAZINE [Suspect]
     Active Substance: SULFASALAZINE
     Route: 065
  151. SULFASALAZINE [Suspect]
     Active Substance: SULFASALAZINE
     Route: 058
  152. SULFASALAZINE [Suspect]
     Active Substance: SULFASALAZINE
     Route: 065
  153. SULFASALAZINE [Suspect]
     Active Substance: SULFASALAZINE
     Route: 065
  154. SULFASALAZINE [Suspect]
     Active Substance: SULFASALAZINE
     Route: 065
  155. SULFASALAZINE [Suspect]
     Active Substance: SULFASALAZINE
     Route: 065
  156. AIMOVIG [Suspect]
     Active Substance: ERENUMAB-AOOE
     Indication: Migraine
     Dosage: PREFILLED SYRINGE
  157. GOLD SODIUM THIOMALATE [Suspect]
     Active Substance: GOLD SODIUM THIOMALATE
     Indication: Product used for unknown indication
     Route: 030
  158. GOLD SODIUM THIOMALATE [Suspect]
     Active Substance: GOLD SODIUM THIOMALATE
     Route: 030
  159. CORTISONE ACETATE [Suspect]
     Active Substance: CORTISONE ACETATE
     Indication: Rheumatoid arthritis
     Route: 048
  160. CORTISONE ACETATE [Suspect]
     Active Substance: CORTISONE ACETATE
     Route: 048
  161. CORTISONE ACETATE [Suspect]
     Active Substance: CORTISONE ACETATE
     Route: 061
  162. CORTISONE ACETATE [Suspect]
     Active Substance: CORTISONE ACETATE
     Route: 048

REACTIONS (117)
  - Drug-induced liver injury [Fatal]
  - Grip strength decreased [Fatal]
  - Hand deformity [Fatal]
  - Headache [Fatal]
  - Helicobacter infection [Fatal]
  - Hepatic enzyme increased [Fatal]
  - Hepatitis [Fatal]
  - Hypercholesterolaemia [Fatal]
  - Hypersensitivity [Fatal]
  - Hypertension [Fatal]
  - Ill-defined disorder [Fatal]
  - Impaired healing [Fatal]
  - Inflammation [Fatal]
  - Infusion related reaction [Fatal]
  - Injection site reaction [Fatal]
  - Injury [Fatal]
  - Insomnia [Fatal]
  - Intentional product use issue [Fatal]
  - Irritable bowel syndrome [Fatal]
  - Joint range of motion decreased [Fatal]
  - Joint swelling [Fatal]
  - Lip dry [Fatal]
  - Live birth [Fatal]
  - Onychomycosis [Fatal]
  - Osteoarthritis [Fatal]
  - Pain [Fatal]
  - Paraesthesia [Fatal]
  - Pain in extremity [Fatal]
  - Pemphigus [Fatal]
  - Peripheral swelling [Fatal]
  - Pericarditis [Fatal]
  - Peripheral venous disease [Fatal]
  - Pneumonia [Fatal]
  - Product label confusion [Fatal]
  - Product quality issue [Fatal]
  - Product use in unapproved indication [Fatal]
  - Psoriatic arthropathy [Fatal]
  - Rash [Fatal]
  - Rheumatic fever [Fatal]
  - Rheumatoid arthritis [Fatal]
  - Sleep disorder [Fatal]
  - Swelling [Fatal]
  - Stomatitis [Fatal]
  - Asthenia [Fatal]
  - Anti-cyclic citrullinated peptide antibody positive [Fatal]
  - Adverse reaction [Fatal]
  - Arthropathy [Fatal]
  - Abdominal distension [Fatal]
  - Abdominal discomfort [Fatal]
  - Abdominal pain upper [Fatal]
  - Alopecia [Fatal]
  - Arthralgia [Fatal]
  - Back injury [Fatal]
  - Blepharospasm [Fatal]
  - Blister [Fatal]
  - Blood cholesterol increased [Fatal]
  - Breast cancer stage III [Fatal]
  - Bursitis [Fatal]
  - C-reactive protein abnormal [Fatal]
  - Coeliac disease [Fatal]
  - Condition aggravated [Fatal]
  - Confusional state [Fatal]
  - Contraindicated product administered [Fatal]
  - Depression [Fatal]
  - Diarrhoea [Fatal]
  - Dizziness [Fatal]
  - Drug ineffective [Fatal]
  - Drug intolerance [Fatal]
  - Dry mouth [Fatal]
  - Duodenal ulcer perforation [Fatal]
  - Dyspepsia [Fatal]
  - Dyspnoea [Fatal]
  - Epilepsy [Fatal]
  - Exposure during pregnancy [Fatal]
  - Facet joint syndrome [Fatal]
  - Fall [Fatal]
  - Fatigue [Fatal]
  - Fibromyalgia [Fatal]
  - Finger deformity [Fatal]
  - Folliculitis [Fatal]
  - Gait inability [Fatal]
  - Gastrointestinal disorder [Fatal]
  - Gastrooesophageal reflux disease [Fatal]
  - Glossodynia [Fatal]
  - Liver function test increased [Fatal]
  - Liver injury [Fatal]
  - Lower respiratory tract infection [Fatal]
  - Lung disorder [Fatal]
  - Malaise [Fatal]
  - Maternal exposure during pregnancy [Fatal]
  - Memory impairment [Fatal]
  - Migraine [Fatal]
  - Mobility decreased [Fatal]
  - Muscle injury [Fatal]
  - Muscle spasms [Fatal]
  - Muscular weakness [Fatal]
  - Musculoskeletal stiffness [Fatal]
  - Nail disorder [Fatal]
  - Nasopharyngitis [Fatal]
  - Nausea [Fatal]
  - Neck pain [Fatal]
  - Night sweats [Fatal]
  - Obesity [Fatal]
  - Off label use [Fatal]
  - Onychomadesis [Fatal]
  - Synovitis [Fatal]
  - Systemic lupus erythematosus [Fatal]
  - Taste disorder [Fatal]
  - Therapeutic product effect decreased [Fatal]
  - Treatment failure [Fatal]
  - Type 2 diabetes mellitus [Fatal]
  - Urticaria [Fatal]
  - Vomiting [Fatal]
  - Weight increased [Fatal]
  - Wheezing [Fatal]
  - Wound [Fatal]
  - Wound infection [Fatal]
